FAERS Safety Report 14122872 (Version 1)
Quarter: 2017Q4

REPORT INFORMATION
  Report Type: Spontaneous
  Country: US (occurrence: US)
  Receive Date: 20171024
  Receipt Date: 20171024
  Transmission Date: 20180321
  Serious: Yes (Disabling)
  Sender: FDA-Public Use
  Company Number: None

PATIENT
  Age: 67 Year
  Sex: Female
  Weight: 77.4 kg

DRUGS (15)
  1. VITAMIN D3 [Concomitant]
     Active Substance: CHOLECALCIFEROL
  2. MELATONIN [Concomitant]
     Active Substance: MELATONIN
  3. FISH OIL [Concomitant]
     Active Substance: FISH OIL
  4. RANITIDINE. [Concomitant]
     Active Substance: RANITIDINE
  5. MAGNESIUM OXIDE. [Concomitant]
     Active Substance: MAGNESIUM OXIDE
  6. LISINOPRIL. [Concomitant]
     Active Substance: LISINOPRIL
  7. CIPRO [Suspect]
     Active Substance: CIPROFLOXACIN HYDROCHLORIDE
     Indication: DIVERTICULITIS
     Route: 042
     Dates: start: 20170823, end: 20170830
  8. SERTRALINE [Concomitant]
     Active Substance: SERTRALINE HYDROCHLORIDE
  9. PHAZYME [Concomitant]
     Active Substance: DIMETHICONE 410
  10. ESTROVEN [Concomitant]
     Active Substance: DIETARY SUPPLEMENT
  11. EZETMIBE [Concomitant]
  12. ALPRAZOLAM. [Concomitant]
     Active Substance: ALPRAZOLAM
  13. MULTIVITAMIN [Concomitant]
     Active Substance: VITAMINS
  14. ASPIRIN. [Concomitant]
     Active Substance: ASPIRIN
  15. ESMOPRAZOLE MAG [Concomitant]

REACTIONS (4)
  - Arthralgia [None]
  - Musculoskeletal pain [None]
  - Fibromyalgia [None]
  - Mental disorder [None]

NARRATIVE: CASE EVENT DATE: 20170825
